FAERS Safety Report 21151735 (Version 1)
Quarter: 2022Q3

REPORT INFORMATION
  Report Type: Report from Study
  Country: US (occurrence: US)
  Receive Date: 20220730
  Receipt Date: 20220730
  Transmission Date: 20221026
  Serious: Yes (Other)
  Sender: FDA-Public Use
  Company Number: US-NOVARTISPH-NVSC2022US169866

PATIENT
  Sex: Female

DRUGS (1)
  1. GILENYA [Suspect]
     Active Substance: FINGOLIMOD HYDROCHLORIDE
     Indication: Multiple sclerosis
     Dosage: 0.5 MG, QD
     Route: 048

REACTIONS (7)
  - Neoplasm malignant [Unknown]
  - Mental impairment [Unknown]
  - Amnesia [Unknown]
  - Scoliosis [Unknown]
  - Nerve compression [Unknown]
  - Disturbance in attention [Unknown]
  - Somnolence [Unknown]
